FAERS Safety Report 20799601 (Version 6)
Quarter: 2024Q1

REPORT INFORMATION
  Report Type: Spontaneous
  Country: US (occurrence: US)
  Receive Date: 20220509
  Receipt Date: 20240214
  Transmission Date: 20240410
  Serious: Yes (Other)
  Sender: FDA-Public Use
  Company Number: US-PFIZER INC-202101599341

PATIENT
  Age: 87 Year
  Sex: Female

DRUGS (6)
  1. IBRANCE [Suspect]
     Active Substance: PALBOCICLIB
     Indication: Breast cancer metastatic
     Dosage: 125 MG
  2. IBRANCE [Suspect]
     Active Substance: PALBOCICLIB
     Dosage: 75 MG, CYCLIC (2 WEEKS ON AND 2 WEEKS OFF)
     Route: 048
     Dates: start: 202107
  3. IBRANCE [Suspect]
     Active Substance: PALBOCICLIB
     Dosage: 100 MG, CYCLIC (1-21 OF EACH 28-DAY CYCLE. TAKE WHOLE W/ WATER, W/ OR W/O FOOD, SAME EACH DAY)
     Route: 048
  4. IBRANCE [Suspect]
     Active Substance: PALBOCICLIB
     Dosage: 75 MG ON DAYS 1-21 OF A 28 DAY CYCLE
     Route: 048
  5. ANASTROZOLE [Concomitant]
     Active Substance: ANASTROZOLE
     Dosage: UNK, CYCLIC, (#2)
     Dates: start: 202107
  6. MEDROL [Concomitant]
     Active Substance: METHYLPREDNISOLONE
     Dosage: DAY1 6TABS, DAY2 5TABS, DAY3 4TABS, DAY4 3TABS, DAY5 2TABS, DAY6 1TAB
     Route: 048

REACTIONS (2)
  - Deafness [Unknown]
  - Rash [Unknown]
